FAERS Safety Report 5457802-2 (Version None)
Quarter: 2007Q3

REPORT INFORMATION
  Report Type: 
  Country: None (occurrence: None)
  Receive Date: 20070917
  Receipt Date: 20070907
  Transmission Date: 20080115
  Serious: Yes (Death, Hospitalization)
  Sender: FDA-Public Use
  Company Number: MEDI-0005981

PATIENT
  Age: 71 Year
  Sex: Female

DRUGS (7)
  1. ETHYOL [Suspect]
     Indication: LIP AND/OR ORAL CAVITY CANCER
     Dosage: 500 MG, 5 IN 5 D, SUBCUTANEOUS; 500 MG, 5 IN 5 D, SUBCUTANEOUS
     Route: 058
     Dates: start: 20070620, end: 20070701
  2. ETHYOL [Suspect]
     Indication: LIP AND/OR ORAL CAVITY CANCER
     Dosage: 500 MG, 5 IN 5 D, SUBCUTANEOUS; 500 MG, 5 IN 5 D, SUBCUTANEOUS
     Route: 058
     Dates: start: 20070701, end: 20070803
  3. ZOFRAN [Concomitant]
  4. CLARITIN [Concomitant]
  5. SEGILINE (SELEGILINE) [Concomitant]
  6. CHEMOTHERAPY [Concomitant]
  7. RADIATION THERAPY [Concomitant]

REACTIONS (8)
  - ANTIMICROBIAL SUSCEPTIBILITY TEST RESISTANT [None]
  - DRUG ERUPTION [None]
  - INJECTION SITE ERYTHEMA [None]
  - MUCOSAL INFLAMMATION [None]
  - NEUTROPENIA [None]
  - ORAL MUCOSA EROSION [None]
  - SEPSIS [None]
  - STAPHYLOCOCCAL INFECTION [None]
